FAERS Safety Report 6931755-X (Version None)
Quarter: 2010Q3

REPORT INFORMATION
  Report Type: 
  Country: None (occurrence: None)
  Receive Date: 20100819
  Receipt Date: 20100810
  Transmission Date: 20110219
  Serious: Yes (Other)
  Sender: FDA-Public Use
  Company Number: DE-PFIZER INC-2010100745

PATIENT
  Age: 44 Year
  Sex: Male

DRUGS (2)
  1. CHAMPIX [Suspect]
     Dosage: UNK
     Route: 048
     Dates: start: 20080801, end: 20100101
  2. CHAMPIX [Suspect]
     Dosage: UNK
     Route: 048
     Dates: start: 20100601, end: 20100101

REACTIONS (4)
  - GASTROINTESTINAL HAEMORRHAGE [None]
  - GASTROINTESTINAL INFLAMMATION [None]
  - HAEMATOCHEZIA [None]
  - INTESTINAL PROLAPSE [None]
